FAERS Safety Report 5005132-5 (Version None)
Quarter: 2006Q2

REPORT INFORMATION
  Report Type: 
  Country: None (occurrence: None)
  Receive Date: 20060518
  Receipt Date: 20060512
  Transmission Date: 20061013
  Serious: Yes (Death)
  Sender: FDA-Public Use
  Company Number: PHEH2006US06259

PATIENT
  Age: 74 Year
  Sex: Male

DRUGS (1)
  1. SANDOSTATIN [Suspect]
     Indication: GASTROINTESTINAL HYPERMOTILITY
     Dates: start: 20050201

REACTIONS (3)
  - GASTRIC PERFORATION [None]
  - PNEUMONIA [None]
  - RENAL FAILURE [None]
